FAERS Safety Report 23167033 (Version 2)
Quarter: 2023Q4

REPORT INFORMATION
  Report Type: Spontaneous
  Country: CN (occurrence: CN)
  Receive Date: 20231109
  Receipt Date: 20231120
  Transmission Date: 20240110
  Serious: Yes (Other)
  Sender: FDA-Public Use
  Company Number: CN-PFIZER INC-PV202300181260

PATIENT
  Age: 90 Year
  Sex: Male
  Weight: 49 kg

DRUGS (2)
  1. NIRMATRELVIR\RITONAVIR [Suspect]
     Active Substance: NIRMATRELVIR\RITONAVIR
     Indication: COVID-19 treatment
     Dosage: 250 MG, 2X/DAY
     Route: 048
     Dates: start: 20231001, end: 20231007
  2. RO-0622 [Suspect]
     Active Substance: RO-0622
     Indication: Symptomatic treatment
     Dosage: 5 MG, 1X/DAY
     Route: 048
     Dates: start: 20230926, end: 20231001

REACTIONS (3)
  - Liver injury [Not Recovered/Not Resolved]
  - Off label use [Unknown]
  - Product use issue [Unknown]

NARRATIVE: CASE EVENT DATE: 20231001
